FAERS Safety Report 8781313 (Version 2)
Quarter: 2012Q4

REPORT INFORMATION
  Report Type: 
  Country: US (occurrence: US)
  Receive Date: 20120913
  Receipt Date: 20120927
  Transmission Date: 20130627
  Serious: Yes (Death)
  Sender: FDA-Public Use
  Company Number: US-ROCHE-1125505

PATIENT
  Age: 63 Year
  Sex: Male
  Weight: 82.54 kg

DRUGS (1)
  1. XELODA [Suspect]
     Indication: RECTAL CANCER
     Dosage: 4 tab in am , 3 tab in pm
     Route: 048
     Dates: start: 20120724

REACTIONS (1)
  - Death [Fatal]
